FAERS Safety Report 16797544 (Version 5)
Quarter: 2020Q1

REPORT INFORMATION
  Report Type: Report from Study
  Country: JP (occurrence: JP)
  Receive Date: 20190912
  Receipt Date: 20200324
  Transmission Date: 20200409
  Serious: Yes (Other)
  Sender: FDA-Public Use
  Company Number: JP-ASTELLAS-2019JP018776

PATIENT
  Age: 86 Year
  Sex: Female
  Weight: 34 kg

DRUGS (6)
  1. ASP2215 [Suspect]
     Active Substance: GILTERITINIB
     Indication: ACUTE MYELOID LEUKAEMIA REFRACTORY
     Route: 048
     Dates: start: 20190815, end: 20190906
  2. ASP2215 [Suspect]
     Active Substance: GILTERITINIB
     Route: 048
     Dates: start: 20191031, end: 20191107
  3. ASP2215 [Suspect]
     Active Substance: GILTERITINIB
     Route: 048
     Dates: start: 20190907, end: 20190922
  4. ASP2215 [Suspect]
     Active Substance: GILTERITINIB
     Route: 048
     Dates: start: 20191007, end: 20191011
  5. ASP2215 [Suspect]
     Active Substance: GILTERITINIB
     Dosage: 80 MG AND 40 MG WERE ADMINISTERED EVERY OTHER DAY
     Route: 048
     Dates: start: 20191025, end: 20191030
  6. ASP2215 [Suspect]
     Active Substance: GILTERITINIB
     Route: 048
     Dates: start: 20191012, end: 20191024

REACTIONS (4)
  - Disseminated intravascular coagulation [Unknown]
  - Cardiac failure [Recovered/Resolved]
  - Electrocardiogram QT prolonged [Unknown]
  - Bone marrow failure [Unknown]

NARRATIVE: CASE EVENT DATE: 20190906
